FAERS Safety Report 17721736 (Version 3)
Quarter: 2020Q3

REPORT INFORMATION
  Report Type: Spontaneous
  Country: US (occurrence: US)
  Receive Date: 20200429
  Receipt Date: 20200827
  Transmission Date: 20201102
  Serious: No
  Sender: FDA-Public Use
  Company Number: US-GLAXOSMITHKLINE-US2020071739

PATIENT
  Age: 48 Year
  Sex: Male

DRUGS (2)
  1. BENLYSTA [Suspect]
     Active Substance: BELIMUMAB
     Indication: SYSTEMIC LUPUS ERYTHEMATOSUS
     Dosage: 200 MG/KG, CYC
     Route: 058
  2. BENLYSTA [Suspect]
     Active Substance: BELIMUMAB
     Indication: SYSTEMIC LUPUS ERYTHEMATOSUS
     Dosage: UNK
     Route: 042
     Dates: start: 20171205

REACTIONS (5)
  - Swollen tongue [Recovered/Resolved]
  - Nausea [Recovered/Resolved]
  - Malaise [Unknown]
  - Oropharyngeal pain [Not Recovered/Not Resolved]
  - Product dose omission issue [Unknown]

NARRATIVE: CASE EVENT DATE: 20200425
